FAERS Safety Report 19549114 (Version 1)
Quarter: 2021Q3

REPORT INFORMATION
  Report Type: Spontaneous
  Country: US (occurrence: US)
  Receive Date: 20210715
  Receipt Date: 20210715
  Transmission Date: 20211014
  Serious: No
  Sender: FDA-Public Use
  Company Number: None

PATIENT
  Age: 80 Year
  Sex: Male
  Weight: 87 kg

DRUGS (1)
  1. HYDRALAZINE (HYDRALAZINE HCL 100MG TAB) [Suspect]
     Active Substance: HYDRALAZINE HYDROCHLORIDE
     Indication: HYPERTENSION
     Route: 048
     Dates: start: 20191127, end: 20210427

REACTIONS (5)
  - Serositis [None]
  - Chest pain [None]
  - Dyspnoea [None]
  - Acute myocardial infarction [None]
  - Lupus-like syndrome [None]

NARRATIVE: CASE EVENT DATE: 20210428
